FAERS Safety Report 6526221-X (Version None)
Quarter: 2009Q4

REPORT INFORMATION
  Report Type: 
  Country: None (occurrence: None)
  Receive Date: 20091228
  Receipt Date: 20091211
  Transmission Date: 20100525
  Serious: Yes (Hospitalization, Other)
  Sender: FDA-Public Use
  Company Number: JPI-P-009328

PATIENT
  Age: 41 Year
  Sex: Female
  Weight: 130.6359 kg

DRUGS (13)
  1. XYREM [Suspect]
     Indication: CATAPLEXY
     Dosage: SEE IMAGE
     Route: 048
     Dates: start: 20080101, end: 20080101
  2. XYREM [Suspect]
     Indication: CATAPLEXY
     Dosage: SEE IMAGE
     Route: 048
     Dates: start: 20080506, end: 20080101
  3. XYREM [Suspect]
     Indication: CATAPLEXY
     Dosage: SEE IMAGE
     Route: 048
     Dates: start: 20080101, end: 20090101
  4. XYREM [Suspect]
     Indication: CATAPLEXY
     Dosage: SEE IMAGE
     Route: 048
     Dates: start: 20090101, end: 20091116
  5. OXYMORPHONE [Suspect]
     Indication: DRUG USE FOR UNKNOWN INDICATION
  6. OXCARBAZEPINE [Suspect]
     Indication: DRUG USE FOR UNKNOWN INDICATION
  7. HYDROCHLOROTHIAZIDE [Suspect]
     Indication: HYPERTENSION
  8. PAIN CONTROL(POULTICE OR PATCH) [Concomitant]
  9. PROMETHAZINE [Concomitant]
  10. AMPHETAMINE AND DEXTROAMPHETAMINE [Concomitant]
  11. METHYLPHENIDATE HCL [Concomitant]
  12. BIRTH CONTROL [Concomitant]
  13. LEVOTHYROXINE SODIUM [Concomitant]

REACTIONS (18)
  - BACTERIAL INFECTION [None]
  - BLOOD PRESSURE DIASTOLIC DECREASED [None]
  - CHROMATURIA [None]
  - CYSTITIS [None]
  - DRUG SCREEN POSITIVE [None]
  - DYSGEUSIA [None]
  - DYSURIA [None]
  - EYE INFECTION BACTERIAL [None]
  - HEADACHE [None]
  - HEPATOMEGALY [None]
  - HYPERTENSION [None]
  - INCORRECT DRUG ADMINISTRATION DURATION [None]
  - INFECTION PARASITIC [None]
  - MENTAL DISORDER [None]
  - NAUSEA [None]
  - SKIN DISORDER [None]
  - TOOTH FRACTURE [None]
  - WEIGHT DECREASED [None]
